FAERS Safety Report 6801747-X (Version None)
Quarter: 2010Q2

REPORT INFORMATION
  Report Type: 
  Country: None (occurrence: None)
  Receive Date: 20100629
  Receipt Date: 20100621
  Transmission Date: 20101027
  Serious: Yes (Hospitalization, Other)
  Sender: FDA-Public Use
  Company Number: CA-GENZYME-CERD-1000016

PATIENT
  Age: 54 Year
  Sex: Female

DRUGS (1)
  1. CEREDASE [Suspect]
     Indication: GAUCHER'S DISEASE
     Dosage: UNK
     Dates: end: 19960101

REACTIONS (2)
  - ARTHROPATHY [None]
  - HEPATITIS C [None]
